FAERS Safety Report 9429217 (Version 1)
Quarter: 2013Q3

REPORT INFORMATION
  Report Type: Spontaneous
  Country: US (occurrence: US)
  Receive Date: 20130730
  Receipt Date: 20130730
  Transmission Date: 20140515
  Serious: No
  Sender: FDA-Public Use
  Company Number: US-BAYER-2013-091740

PATIENT
  Age: 66 Year
  Sex: Male

DRUGS (6)
  1. LEVITRA [Suspect]
     Dosage: 20 MG, UNK
     Route: 048
  2. GLYBURIDE/METFORMIN [Concomitant]
  3. CHANTIX [Concomitant]
  4. WELCHOL [Concomitant]
  5. SIMVASTATIN [Concomitant]
  6. NIASPAN [Concomitant]

REACTIONS (1)
  - Drug ineffective [Recovered/Resolved]
